FAERS Safety Report 20940185 (Version 4)
Quarter: 2022Q3

REPORT INFORMATION
  Report Type: Report from Study
  Country: TW (occurrence: TW)
  Receive Date: 20220609
  Receipt Date: 20220715
  Transmission Date: 20221026
  Serious: Yes (Death, Life-Threatening, Hospitalization)
  Sender: FDA-Public Use
  Company Number: TW-PFIZER INC-202200800232

PATIENT
  Age: 56 Year
  Sex: Male
  Weight: 59 kg

DRUGS (11)
  1. BINIMETINIB [Suspect]
     Active Substance: BINIMETINIB
     Indication: Non-small cell lung cancer
     Dosage: 45MG, BID
     Route: 048
     Dates: start: 20220505, end: 20220601
  2. ENCORAFENIB [Suspect]
     Active Substance: ENCORAFENIB
     Indication: Non-small cell lung cancer
     Dosage: 450 MG, QD
     Route: 048
     Dates: start: 20220505, end: 20220601
  3. SASANLIMAB [Suspect]
     Active Substance: SASANLIMAB
     Indication: Non-small cell lung cancer
     Dosage: 300 MG, Q4W
     Route: 058
     Dates: start: 20220505, end: 20220505
  4. DIMOTIL REPE [Concomitant]
     Indication: Gastrooesophageal reflux disease
     Dosage: 212.5 MG, TID
     Route: 048
     Dates: start: 2020
  5. FAMOTIDINE [Concomitant]
     Active Substance: FAMOTIDINE
     Indication: Gastrooesophageal reflux disease
     Dosage: 20 MG, BID
     Route: 048
     Dates: start: 2020
  6. SALTOLIN [Concomitant]
     Indication: Emphysema
     Dosage: 2 MG, TID
     Route: 048
     Dates: start: 20220223
  7. DEXTROMETHORPHAN HYDROBROMIDE\LYSOZYME HYDROCHLORIDE\POTASSIUM CRESOLS [Concomitant]
     Active Substance: DEXTROMETHORPHAN HYDROBROMIDE\LYSOZYME HYDROCHLORIDE\POTASSIUM CRESOLSULFONATE
     Indication: Emphysema
     Dosage: 130 MG, TID
     Route: 048
     Dates: start: 20220223
  8. OLODATEROL HYDROCHLORIDE\TIOTROPIUM BROMIDE MONOHYDRATE [Concomitant]
     Active Substance: OLODATEROL HYDROCHLORIDE\TIOTROPIUM BROMIDE MONOHYDRATE
     Dosage: 2 MG, QD
     Route: 055
     Dates: start: 20220223
  9. NEUROQUEL [Concomitant]
     Indication: Insomnia
     Dosage: 25 MG, QD
     Route: 048
     Dates: start: 2021
  10. ZOPICLONE [Concomitant]
     Active Substance: ZOPICLONE
     Indication: Insomnia
     Dosage: 7.5 MG, QD
     Route: 048
     Dates: start: 2021
  11. PREDNISOLONE [Concomitant]
     Active Substance: PREDNISOLONE
     Dosage: 20 MG ORAL THREE TIMES DAILY (CYCLE 2, DAY 1).
     Route: 048

REACTIONS (1)
  - Rhabdomyolysis [Fatal]

NARRATIVE: CASE EVENT DATE: 20220603
